FAERS Safety Report 22951245 (Version 3)
Quarter: 2025Q1

REPORT INFORMATION
  Report Type: Spontaneous
  Country: US (occurrence: US)
  Receive Date: 20230917
  Receipt Date: 20250222
  Transmission Date: 20250409
  Serious: No
  Sender: LUPIN
  Company Number: US-LUPIN PHARMACEUTICALS INC.-2023-07827

PATIENT

DRUGS (1)
  1. ALBUTEROL SULFATE [Suspect]
     Active Substance: ALBUTEROL SULFATE
     Indication: Wheezing
     Dosage: UNK UNK, QID 2 PUFFS EVERY 6 HOURS
     Dates: start: 20230829

REACTIONS (3)
  - Wrong technique in product usage process [Unknown]
  - Device delivery system issue [Unknown]
  - No adverse event [Unknown]
